FAERS Safety Report 5195322-3 (Version None)
Quarter: 2006Q4

REPORT INFORMATION
  Report Type: 
  Country: None (occurrence: None)
  Receive Date: 20061229
  Receipt Date: 20061219
  Transmission Date: 20070319
  Serious: Yes (Hospitalization)
  Sender: FDA-Public Use
  Company Number: UA-PFIZER INC-2006154729

PATIENT
  Sex: Female
  Weight: 79 kg

DRUGS (5)
  1. DOXORUBICIN HYDROCHLORIDE [Suspect]
     Indication: CHEMOTHERAPY
     Dosage: DAILY DOSE:113MG
     Route: 042
  2. DOCETAXEL [Suspect]
     Indication: CHEMOTHERAPY
     Dosage: DAILY DOSE:142MG
     Route: 042
  3. INVESTIGATIONAL DRUG [Suspect]
     Indication: PROPHYLAXIS
     Dosage: TEXT:48 MIU
     Dates: start: 20060519, end: 20060526
  4. DEXAMETHASONE [Suspect]
     Indication: PREMEDICATION
     Dosage: DAILY DOSE:8MG
     Route: 048
     Dates: start: 20060517, end: 20060519
  5. DEXAMETHASONE [Suspect]
     Dosage: DAILY DOSE:8MG-FREQ:FREQUENCY: BID
     Route: 048
     Dates: start: 20060607, end: 20060609

REACTIONS (1)
  - ATRIAL FIBRILLATION [None]
